FAERS Safety Report 12899210 (Version 2)
Quarter: 2016Q4

REPORT INFORMATION
  Report Type: Spontaneous
  Country: DK (occurrence: DK)
  Receive Date: 20161101
  Receipt Date: 20161206
  Transmission Date: 20170207
  Serious: Yes (Death, Life-Threatening, Hospitalization)
  Sender: FDA-Public Use
  Company Number: PHHY2016DK149243

PATIENT
  Age: 57 Year
  Sex: Male
  Weight: 76.5 kg

DRUGS (4)
  1. ANTABUS [Concomitant]
     Active Substance: DISULFIRAM
     Indication: ALCOHOL ABUSE
     Dosage: 400 MG, QW2
     Route: 048
     Dates: start: 20160105, end: 20160927
  2. ENTRESTO [Suspect]
     Active Substance: SACUBITRIL\VALSARTAN
     Indication: CARDIAC FAILURE CONGESTIVE
     Dosage: 200 MG, BID
     Route: 048
     Dates: start: 20150902, end: 20160927
  3. ATORVASTATIN [Concomitant]
     Active Substance: ATORVASTATIN
     Indication: HYPERCHOLESTEROLAEMIA
     Dosage: 20 MG, QD
     Route: 048
     Dates: start: 20160418
  4. WARFARIN [Concomitant]
     Active Substance: WARFARIN
     Indication: ATRIAL FIBRILLATION
     Dosage: UNK
     Route: 048
     Dates: start: 20131004, end: 20160927

REACTIONS (1)
  - Cerebral haemorrhage [Fatal]

NARRATIVE: CASE EVENT DATE: 20160927
